FAERS Safety Report 6257759-0 (Version None)
Quarter: 2009Q3

REPORT INFORMATION
  Report Type: 
  Country: None (occurrence: None)
  Receive Date: 20090702
  Receipt Date: 20090626
  Transmission Date: 20100115
  Serious: Yes (Hospitalization)
  Sender: FDA-Public Use
  Company Number: 2009SP014175

PATIENT
  Age: 24 Month
  Sex: Female
  Weight: 10 kg

DRUGS (4)
  1. BETAMETHASONE [Suspect]
     Indication: COUGH
     Dosage: 1 DF; QD; PO
     Route: 048
     Dates: start: 20090603, end: 20090605
  2. ADVIL [Suspect]
     Indication: PYREXIA
     Dosage: 1 DF; TID; PO
     Route: 048
     Dates: start: 20090531, end: 20090602
  3. HELICIDINE (HELICIDINE) [Suspect]
     Indication: COUGH
     Dosage: 1 DF; TID; PO
     Route: 048
     Dates: start: 20090603, end: 20090605
  4. NUREFLEX (IBUPROFEN) [Suspect]
     Indication: PYREXIA
     Dosage: 1 DF; TID; PO
     Route: 048
     Dates: start: 20090605, end: 20090610

REACTIONS (4)
  - CONDITION AGGRAVATED [None]
  - EFFUSION [None]
  - LUNG DISORDER [None]
  - PNEUMONIA [None]
